FAERS Safety Report 6179096-5 (Version None)
Quarter: 2009Q2

REPORT INFORMATION
  Report Type: 
  Country: None (occurrence: None)
  Receive Date: 20090430
  Receipt Date: 20090418
  Transmission Date: 20091009
  Serious: Yes (Hospitalization, Other)
  Sender: FDA-Public Use
  Company Number: ENT 2009-0054

PATIENT
  Age: 87 Year
  Sex: Male
  Weight: 72.7 kg

DRUGS (6)
  1. COMTAN [Suspect]
     Indication: PARKINSON'S DISEASE
     Dosage: 200 MG, FIVE TIMES DAILY, ORAL
     Route: 048
  2. CARBIDOPA + LEVODOPA [Suspect]
     Indication: PARKINSON'S DISEASE
     Dosage: 25/100MG, 1 1/2 FIVE TIMES A DAY, ORAL
     Route: 048
     Dates: start: 19980101
  3. AMANTADINE HCL [Concomitant]
  4. ROPINIROLE [Concomitant]
  5. LOVASTATIN [Concomitant]
  6. DOXAZOSIN MESYLATE [Concomitant]

REACTIONS (3)
  - CONVULSION [None]
  - RENAL ARTERY STENOSIS [None]
  - RENAL IMPAIRMENT [None]
